FAERS Safety Report 17899621 (Version 1)
Quarter: 2020Q2

REPORT INFORMATION
  Report Type: Spontaneous
  Country: JP (occurrence: JP)
  Receive Date: 20200616
  Receipt Date: 20200616
  Transmission Date: 20200714
  Serious: Yes (Other)
  Sender: FDA-Public Use
  Company Number: JP-BRISTOL-MYERS SQUIBB COMPANY-BMS-2020-047084

PATIENT
  Age: 7 Decade
  Sex: Male
  Weight: 90 kg

DRUGS (1)
  1. ELIQUIS [Suspect]
     Active Substance: APIXABAN
     Indication: EMBOLISM VENOUS
     Dosage: 5 MILLIGRAM, BID
     Route: 048

REACTIONS (2)
  - Renal impairment [Unknown]
  - Therapeutic product effect incomplete [Recovered/Resolved]

NARRATIVE: CASE EVENT DATE: 20191001
